FAERS Safety Report 19416433 (Version 3)
Quarter: 2021Q3

REPORT INFORMATION
  Report Type: Report from Study
  Country: US (occurrence: US)
  Receive Date: 20210615
  Receipt Date: 20210902
  Transmission Date: 20211014
  Serious: Yes (Other)
  Sender: FDA-Public Use
  Company Number: US-BIOVITRUM-2021US5112

PATIENT
  Age: 4 Year
  Sex: Female

DRUGS (1)
  1. KINERET [Suspect]
     Active Substance: ANAKINRA
     Indication: PYREXIA
     Dosage: ONCE DAILY ON DAYS OF FLARE FEVER
     Route: 058
     Dates: start: 20210530

REACTIONS (4)
  - Off label use [Not Recovered/Not Resolved]
  - Product dose omission issue [Unknown]
  - Croup infectious [Unknown]
  - Pyrexia [Unknown]

NARRATIVE: CASE EVENT DATE: 20210530
